FAERS Safety Report 4571716-1 (Version None)
Quarter: 2005Q1

REPORT INFORMATION
  Report Type: 
  Country: None (occurrence: None)
  Receive Date: 20050207
  Receipt Date: 20050126
  Transmission Date: 20050727
  Serious: Yes (Other)
  Sender: FDA-Public Use
  Company Number: JP-ROCHE-394335

PATIENT
  Age: 46 Year
  Sex: Female

DRUGS (4)
  1. CELLCEPT [Suspect]
     Route: 048
     Dates: start: 20030515
  2. SIMULECT [Suspect]
     Route: 065
     Dates: start: 20030515
  3. PROGRAF [Suspect]
     Route: 048
     Dates: start: 20030515
  4. MEDROL [Suspect]
     Route: 048
     Dates: start: 20030515

REACTIONS (6)
  - CHEST X-RAY ABNORMAL [None]
  - CYTOMEGALOVIRUS ANTIGEN POSITIVE [None]
  - HYPOXIA [None]
  - KIDNEY TRANSPLANT REJECTION [None]
  - NOSOCOMIAL INFECTION [None]
  - VARICELLA [None]
